FAERS Safety Report 6497002-0 (Version None)
Quarter: 2009Q4

REPORT INFORMATION
  Report Type: 
  Country: None (occurrence: None)
  Receive Date: 20091215
  Receipt Date: 20081216
  Transmission Date: 20100525
  Serious: No
  Sender: FDA-Public Use
  Company Number: A0760735A

PATIENT
  Age: 70 Year
  Sex: Male

DRUGS (3)
  1. AVODART [Suspect]
     Dosage: .5MG PER DAY
     Route: 048
     Dates: start: 20081212
  2. VESICARE [Suspect]
     Dosage: 5MG PER DAY
     Dates: start: 20081212
  3. NO CONCURRENT MEDICATION [Concomitant]

REACTIONS (1)
  - DRUG INEFFECTIVE [None]
